FAERS Safety Report 13105554 (Version 2)
Quarter: 2018Q1

REPORT INFORMATION
  Report Type: Report from Study
  Country: US (occurrence: US)
  Receive Date: 20170111
  Receipt Date: 20180102
  Transmission Date: 20180508
  Serious: Yes (Hospitalization, Other)
  Sender: FDA-Public Use
  Company Number: US-MALLINCKRODT-T201606855

PATIENT
  Age: 53 Year
  Sex: Female

DRUGS (3)
  1. REPOSITORY CORTICOTROPIN INJECTION [Suspect]
     Active Substance: CORTICOTROPIN
     Dosage: 80 UNITS /1ML; 2 TIMES PER WEEK (TUESDAY AND FRIDAY)
     Route: 058
  2. REPOSITORY CORTICOTROPIN INJECTION [Suspect]
     Active Substance: CORTICOTROPIN
     Indication: SARCOIDOSIS
     Dosage: 80 UNITS /1ML; ONCE WEEKLY (WEDNESDAY)
     Route: 058
     Dates: start: 20161214
  3. REPOSITORY CORTICOTROPIN INJECTION [Suspect]
     Active Substance: CORTICOTROPIN
     Dosage: 80 UNITS /1ML; 2 TIMES PER WEEK (TUESDAY AND FRIDAY)
     Route: 058

REACTIONS (23)
  - Pneumonia [Unknown]
  - Onychomycosis [Not Recovered/Not Resolved]
  - Groin pain [Not Recovered/Not Resolved]
  - Musculoskeletal stiffness [Unknown]
  - Headache [Not Recovered/Not Resolved]
  - Mood altered [Not Recovered/Not Resolved]
  - Fatigue [Not Recovered/Not Resolved]
  - Muscle spasms [Not Recovered/Not Resolved]
  - Sleep disorder [Recovering/Resolving]
  - Bundle branch block right [Unknown]
  - Seborrhoeic dermatitis [Not Recovered/Not Resolved]
  - Injection site bruising [Not Recovered/Not Resolved]
  - Food craving [Unknown]
  - Lymphadenopathy [Not Recovered/Not Resolved]
  - Incontinence [Not Recovered/Not Resolved]
  - Vision blurred [Recovered/Resolved]
  - Urinary retention [Not Recovered/Not Resolved]
  - Visual impairment [Recovered/Resolved]
  - Weight decreased [Not Recovered/Not Resolved]
  - Myalgia [Not Recovered/Not Resolved]
  - Arthralgia [Not Recovered/Not Resolved]
  - Photophobia [Not Recovered/Not Resolved]
  - Migraine [Not Recovered/Not Resolved]

NARRATIVE: CASE EVENT DATE: 201612
